FAERS Safety Report 11148850 (Version 1)
Quarter: 2015Q2

REPORT INFORMATION
  Report Type: Spontaneous
  Country: JP (occurrence: JP)
  Receive Date: 20150529
  Receipt Date: 20150529
  Transmission Date: 20150821
  Serious: Yes (Death, Other)
  Sender: FDA-Public Use
  Company Number: JP-CIPLA LTD.-2015JP04296

PATIENT

DRUGS (2)
  1. CARBOPLATIN. [Suspect]
     Active Substance: CARBOPLATIN
     Indication: SMALL CELL LUNG CANCER
     Dosage: AUC 5.0 FOR MORE THAN 30 MIN AFTER IRINOTECAN ON DAY 1
  2. IRINOTECAN [Suspect]
     Active Substance: IRINOTECAN
     Indication: SMALL CELL LUNG CANCER
     Dosage: 50 MG/M2 OVER MORE THAN 90 MIN ON DAY 1

REACTIONS (2)
  - Pulmonary alveolar haemorrhage [Fatal]
  - Thrombocytopenia [Unknown]
